FAERS Safety Report 9902789 (Version 3)
Quarter: 2014Q1

REPORT INFORMATION
  Report Type: Report from Study
  Country: DE (occurrence: DE)
  Receive Date: 20140212
  Receipt Date: 20140326
  Transmission Date: 20141002
  Serious: Yes (Other)
  Sender: FDA-Public Use
  Company Number: PHHY2014DE016143

PATIENT
  Sex: Male
  Weight: 92 kg

DRUGS (4)
  1. ICL670A [Suspect]
     Dosage: 1000 MG, UNK
     Dates: start: 20111028, end: 20120126
  2. ICL670A [Suspect]
     Dosage: 1500 MG, UNK
     Dates: start: 20120127, end: 20120216
  3. ICL670A [Suspect]
     Dosage: 2000 UNK, UNK
     Dates: start: 20120217, end: 20121129
  4. DIURETICS [Concomitant]

REACTIONS (1)
  - Creatinine renal clearance decreased [Recovered/Resolved]
